FAERS Safety Report 5562684-4 (Version None)
Quarter: 2007Q4

REPORT INFORMATION
  Report Type: 
  Country: None (occurrence: None)
  Receive Date: 20071211
  Receipt Date: 20071211
  Transmission Date: 20080405
  Serious: Yes (Hospitalization, Disabling, Other)
  Sender: FDA-Public Use
  Company Number: None

PATIENT
  Age: 23 Year
  Sex: Female
  Weight: 56.6996 kg

DRUGS (1)
  1. PROAIR HFA [Suspect]
     Indication: ASTHMA
     Dosage: AS NEEDED PO
     Route: 048
     Dates: start: 20070301, end: 20071201

REACTIONS (4)
  - COMPLICATION OF PREGNANCY [None]
  - DRUG EFFECT DECREASED [None]
  - DRUG EXPOSURE DURING PREGNANCY [None]
  - PHARMACEUTICAL PRODUCT COMPLAINT [None]
